FAERS Safety Report 6332308-7 (Version None)
Quarter: 2009Q3

REPORT INFORMATION
  Report Type: 
  Country: None (occurrence: None)
  Receive Date: 20090828
  Receipt Date: 20090820
  Transmission Date: 20100115
  Serious: Yes (Death, Hospitalization)
  Sender: FDA-Public Use
  Company Number: PHHY2009JP14759

PATIENT
  Age: 66 Year
  Sex: Female

DRUGS (16)
  1. ICL670A ICL+DISTAB [Suspect]
     Indication: IRON OVERLOAD
     Dosage: 500MG DAILY
     Route: 048
     Dates: start: 20080910, end: 20090209
  2. AMOBAN [Concomitant]
     Dosage: 7.5MG
     Route: 048
     Dates: start: 20030606, end: 20090423
  3. LEVOFLOXACIN [Concomitant]
     Dosage: 600MG
     Route: 048
     Dates: start: 20081021, end: 20081113
  4. GLAKAY [Concomitant]
     Indication: MYELODYSPLASTIC SYNDROME
     Dosage: 45MG
     Route: 048
     Dates: start: 20090123, end: 20090131
  5. GRAN [Concomitant]
     Indication: MYELODYSPLASTIC SYNDROME
     Dosage: 75UG
     Route: 042
     Dates: start: 20090131, end: 20090424
  6. VANCOMYCIN [Concomitant]
     Dosage: 2G
     Route: 042
     Dates: start: 20090205, end: 20090209
  7. FUNGUARD [Concomitant]
     Dosage: 150MG
     Route: 042
     Dates: start: 20090205, end: 20090206
  8. VFEND [Concomitant]
     Dosage: 400MG
     Route: 048
     Dates: start: 20090206, end: 20090420
  9. FINIBAX [Concomitant]
     Dosage: 1G
     Route: 042
     Dates: start: 20090205, end: 20090215
  10. RED BLOOD CELLS [Concomitant]
     Dosage: 4 UNITS EVERY TWO WEEKS
     Dates: start: 20080910, end: 20090310
  11. ASTOMIN [Concomitant]
     Dosage: 30 MG
     Route: 048
     Dates: start: 20090310, end: 20090420
  12. TRANSAMIN [Concomitant]
     Dosage: 750 MG
     Route: 048
     Dates: start: 20090403, end: 20090420
  13. PACIL [Concomitant]
     Dosage: 500 MG
     Route: 042
     Dates: start: 20090312, end: 20090324
  14. MEROPEN [Concomitant]
     Dosage: 2 G
     Route: 042
     Dates: start: 20090410, end: 20090416
  15. CEFTAZIDIME [Concomitant]
     Dosage: 2 G
     Route: 042
     Dates: start: 20090416, end: 20090418
  16. AMBISOME [Concomitant]
     Dosage: 90 MG
     Route: 042
     Dates: start: 20090420, end: 20090424

REACTIONS (5)
  - AGRANULOCYTOSIS [None]
  - PANCYTOPENIA [None]
  - PNEUMONIA FUNGAL [None]
  - PYREXIA [None]
  - RENAL IMPAIRMENT [None]
